FAERS Safety Report 5090793-5 (Version None)
Quarter: 2006Q3

REPORT INFORMATION
  Report Type: 
  Country: None (occurrence: None)
  Receive Date: 20060823
  Receipt Date: 20060810
  Transmission Date: 20061208
  Serious: Yes (Hospitalization)
  Sender: FDA-Public Use
  Company Number: 2005167097

PATIENT
  Sex: Female

DRUGS (3)
  1. MYLANTA PLUS [Suspect]
     Indication: PEPTIC ULCER
     Dosage: 1 SPOON THREE TIMES DAILY, ORAL
     Route: 048
     Dates: start: 20051126
  2. VOMEX A - SLOW RELEASE [Concomitant]
  3. DRUG, UNSPECIFIED (DRUG, UNSPECIFIED) [Concomitant]

REACTIONS (3)
  - DRUG EXPOSURE DURING PREGNANCY [None]
  - INCORRECT DOSE ADMINISTERED [None]
  - PREMATURE BABY [None]
